FAERS Safety Report 20852246 (Version 2)
Quarter: 2022Q3

REPORT INFORMATION
  Report Type: Report from Study
  Country: CA (occurrence: CA)
  Receive Date: 20220520
  Receipt Date: 20220818
  Transmission Date: 20221027
  Serious: Yes (Other)
  Sender: FDA-Public Use
  Company Number: CA-JNJFOC-20220528777

PATIENT
  Age: 1 Decade
  Sex: Female
  Weight: 18 kg

DRUGS (3)
  1. REMICADE [Suspect]
     Active Substance: INFLIXIMAB
     Indication: Colitis ulcerative
     Route: 042
     Dates: start: 20210922
  2. REMICADE [Suspect]
     Active Substance: INFLIXIMAB
     Dosage: RELOAD AT 300MG, FOLLOWED BY 0,1,4 1 EVERY 4 WEEKS INTERVAL
     Route: 042
  3. REMICADE [Suspect]
     Active Substance: INFLIXIMAB
     Route: 042

REACTIONS (2)
  - Colitis ulcerative [Not Recovered/Not Resolved]
  - Drug level decreased [Unknown]
